FAERS Safety Report 15034874 (Version 17)
Quarter: 2021Q4

REPORT INFORMATION
  Report Type: Other
  Country: CA (occurrence: None)
  Receive Date: 20180620
  Receipt Date: 20211222
  Transmission Date: 20220303
  Serious: Yes (Hospitalization, Other)
  Sender: FDA-Public Use
  Company Number: CA-ROCHE-1919526

PATIENT
  Age: 54 Year
  Sex: Female

DRUGS (22)
  1. RITUXAN [Suspect]
     Active Substance: RITUXIMAB
     Indication: Rheumatoid arthritis
     Dosage: DAY 1, 15, LAST RITUXAN INFUSION RECEIVED ON 20/OCT/2016, 10/APR/2017, 06/DEC/2017, 27/JUN/2018
     Route: 042
     Dates: start: 20160519
  2. METOPROLOL [Suspect]
     Active Substance: METOPROLOL
     Indication: Heart rate increased
     Route: 065
     Dates: start: 2018
  3. ADALAT [Suspect]
     Active Substance: NIFEDIPINE
     Indication: Hypertension
     Dosage: 30 ER TAB
     Route: 065
     Dates: start: 201706, end: 2018
  4. ADALAT [Suspect]
     Active Substance: NIFEDIPINE
     Route: 065
     Dates: start: 20171030
  5. TYLENOL [Concomitant]
     Active Substance: ACETAMINOPHEN
     Indication: Premedication
     Route: 048
     Dates: start: 20160519
  6. MORPHINE [Concomitant]
     Active Substance: MORPHINE
  7. PREDNISONE [Concomitant]
     Active Substance: PREDNISONE
  8. PANTOPRAZOLE [Concomitant]
     Active Substance: PANTOPRAZOLE
  9. PANTOPRAZOLE [Concomitant]
     Active Substance: PANTOPRAZOLE
  10. AMITRIPTYLINE [Concomitant]
     Active Substance: AMITRIPTYLINE
  11. ASPIRIN [Concomitant]
     Active Substance: ASPIRIN
  12. CLONAZEPAM [Concomitant]
     Active Substance: CLONAZEPAM
  13. CLOPIDOGREL [Concomitant]
     Active Substance: CLOPIDOGREL BISULFATE
  14. PRAZOSIN [Concomitant]
     Active Substance: PRAZOSIN
  15. PREGABALIN [Concomitant]
     Active Substance: PREGABALIN
  16. ROSUVASTATIN [Concomitant]
     Active Substance: ROSUVASTATIN
  17. BENADRYL [Concomitant]
     Active Substance: DIPHENHYDRAMINE HYDROCHLORIDE
     Indication: Premedication
     Route: 048
  18. SOLU-MEDROL [Concomitant]
     Active Substance: METHYLPREDNISOLONE SODIUM SUCCINATE
     Indication: Premedication
     Route: 042
  19. TYLENOL [Concomitant]
     Active Substance: ACETAMINOPHEN
  20. SOLU-MEDROL [Concomitant]
     Active Substance: METHYLPREDNISOLONE SODIUM SUCCINATE
     Indication: Premedication
     Route: 042
     Dates: start: 20160519
  21. ASPIRIN [Concomitant]
     Active Substance: ASPIRIN
  22. BENADRYL [Concomitant]
     Active Substance: DIPHENHYDRAMINE HYDROCHLORIDE
     Indication: Premedication
     Route: 048
     Dates: start: 20160519

REACTIONS (22)
  - Blood pressure increased [Unknown]
  - Insomnia [Recovering/Resolving]
  - Myocardial infarction [Unknown]
  - Stress [Recovering/Resolving]
  - Restlessness [Not Recovered/Not Resolved]
  - Headache [Not Recovered/Not Resolved]
  - Heart rate increased [Unknown]
  - Vasculitis [Not Recovered/Not Resolved]
  - Hypotension [Unknown]
  - Depression [Not Recovered/Not Resolved]
  - Rheumatoid arthritis [Not Recovered/Not Resolved]
  - Skin ulcer [Not Recovered/Not Resolved]
  - Aggression [Not Recovered/Not Resolved]
  - Hallucination, visual [Recovered/Resolved]
  - Depressed mood [Unknown]
  - Oxygen saturation decreased [Unknown]
  - Drug ineffective [Unknown]
  - Drug interaction [Unknown]
  - Blood pressure fluctuation [Unknown]
  - Blood pressure systolic increased [Unknown]
  - Blood pressure fluctuation [Unknown]
  - Blood pressure diastolic abnormal [Unknown]

NARRATIVE: CASE EVENT DATE: 20170410
